FAERS Safety Report 4617115-5 (Version None)
Quarter: 2005Q1

REPORT INFORMATION
  Report Type: 
  Country: None (occurrence: None)
  Receive Date: 20050321
  Receipt Date: 20050316
  Transmission Date: 20050727
  Serious: Yes (Hospitalization)
  Sender: FDA-Public Use
  Company Number: TIF2004A00006

PATIENT
  Age: 60 Year
  Sex: Female

DRUGS (11)
  1. LANSOX             (LANSOPRAZOLE) [Suspect]
     Indication: DYSPEPSIA
     Dosage: 15 MG (15 MG, 1 IN 1 D) ORAL
     Route: 048
     Dates: start: 20030716, end: 20030801
  2. LANSOX             (LANSOPRAZOLE) [Suspect]
     Indication: NAUSEA
     Dosage: 15 MG (15 MG, 1 IN 1 D) ORAL
     Route: 048
     Dates: start: 20030716, end: 20030801
  3. LANSOX             (LANSOPRAZOLE) [Suspect]
     Indication: DYSPEPSIA
     Dosage: 15 MG (15 MG, 1 IN 1 D) ORAL
     Route: 048
  4. LANSOX             (LANSOPRAZOLE) [Suspect]
     Indication: NAUSEA
     Dosage: 15 MG (15 MG, 1 IN 1 D) ORAL
     Route: 048
  5. LANSOX             (LANSOPRAZOLE) [Suspect]
     Indication: DYSPEPSIA
     Dosage: 15 MG (15 MG, 1 IN 1 D) ORAL
     Route: 048
  6. LANSOX             (LANSOPRAZOLE) [Suspect]
     Indication: NAUSEA
     Dosage: 15 MG (15 MG, 1 IN 1 D) ORAL
     Route: 048
  7. GLIVEC         (IMATINIB MESILATE) [Suspect]
     Indication: PALLIATIVE CARE
     Dosage: 400 + 300 MG (100 MG, 4 IN 1 D) ORAL
     Route: 048
     Dates: start: 20030516, end: 20030819
  8. GLIVEC         (IMATINIB MESILATE) [Suspect]
     Indication: PALLIATIVE CARE
     Dosage: 400 + 300 MG (100 MG, 4 IN 1 D) ORAL
     Route: 048
  9. GLIVEC         (IMATINIB MESILATE) [Suspect]
     Indication: PALLIATIVE CARE
     Dosage: 400 + 300 MG (100 MG, 4 IN 1 D) ORAL
     Route: 048
  10. PREDNISONE [Concomitant]
  11. DESLORATADINE [Concomitant]

REACTIONS (4)
  - ANGIONEUROTIC OEDEMA [None]
  - DRUG INTERACTION [None]
  - STEVENS-JOHNSON SYNDROME [None]
  - STOMATITIS [None]
